FAERS Safety Report 11592153 (Version 1)
Quarter: 2015Q4

REPORT INFORMATION
  Report Type: Spontaneous
  Country: US (occurrence: None)
  Receive Date: 20151001
  Receipt Date: 20151001
  Transmission Date: 20160304
  Serious: Yes (Death, Other)
  Sender: FDA-Public Use
  Company Number: 2015HINLIT0803

PATIENT
  Age: 34 Year
  Sex: Male

DRUGS (3)
  1. HEPARIN [Suspect]
     Active Substance: HEPARIN SODIUM
     Indication: PRODUCT USED FOR UNKNOWN INDICATION
  2. IMIPENEM (IMIPENEM) [Concomitant]
     Active Substance: IMIPENEM
  3. LEVOFLOXACIN. [Suspect]
     Active Substance: LEVOFLOXACIN
     Indication: PNEUMONIA PSEUDOMONAL

REACTIONS (6)
  - Septic shock [None]
  - Acute kidney injury [None]
  - Drug resistance [None]
  - Acute respiratory distress syndrome [None]
  - Heparin-induced thrombocytopenia [None]
  - Multi-organ failure [None]
